FAERS Safety Report 20976920 (Version 3)
Quarter: 2022Q3

REPORT INFORMATION
  Report Type: Report from Study
  Country: CA (occurrence: None)
  Receive Date: 20220617
  Receipt Date: 20220721
  Transmission Date: 20221027
  Serious: Yes (Hospitalization, Other)
  Sender: FDA-Public Use
  Company Number: CA-Eisai Medical Research-EC-2022-117295

PATIENT
  Age: 76 Year
  Sex: Female
  Weight: 73.4 kg

DRUGS (12)
  1. LENVATINIB [Suspect]
     Active Substance: LENVATINIB
     Indication: Transitional cell carcinoma
     Dosage: STARTING DOSE AT 20 MG, FLUCTUATED DOSE
     Route: 048
     Dates: start: 20210407, end: 20210831
  2. LENVATINIB [Suspect]
     Active Substance: LENVATINIB
     Route: 048
     Dates: start: 20210901, end: 20210901
  3. PEMBROLIZUMAB [Suspect]
     Active Substance: PEMBROLIZUMAB
     Indication: Transitional cell carcinoma
     Route: 042
     Dates: start: 20220407, end: 20220420
  4. PEMBROLIZUMAB [Suspect]
     Active Substance: PEMBROLIZUMAB
     Route: 042
     Dates: start: 20220602, end: 20220602
  5. VENTOLIN [Concomitant]
     Active Substance: ALBUTEROL SULFATE
     Dates: start: 201001
  6. DILTIAZEM [Concomitant]
     Active Substance: DILTIAZEM
     Dates: start: 202101
  7. ELIQUIS [Concomitant]
     Active Substance: APIXABAN
     Dates: start: 20210406
  8. BUDESONIDE [Concomitant]
     Active Substance: BUDESONIDE
     Dates: start: 20210519
  9. AMLODIPINE [Concomitant]
     Active Substance: AMLODIPINE BESYLATE
     Dates: start: 20210721
  10. PERINDOPRIL [Concomitant]
     Active Substance: PERINDOPRIL
     Dates: start: 20210721
  11. DEXAMETHASONE;DIPHENHYDRAMINE;NYSTATIN [Concomitant]
     Dosage: RINSE
     Dates: start: 20210922
  12. HYDROCHLOROTHIAZIDE [Concomitant]
     Active Substance: HYDROCHLOROTHIAZIDE
     Dates: start: 20210923

REACTIONS (2)
  - Hyperglycaemia [Recovered/Resolved with Sequelae]
  - Femur fracture [Recovered/Resolved with Sequelae]

NARRATIVE: CASE EVENT DATE: 20220609
